FAERS Safety Report 13508582 (Version 1)
Quarter: 2017Q2

REPORT INFORMATION
  Report Type: Spontaneous
  Country: US (occurrence: US)
  Receive Date: 20170503
  Receipt Date: 20170503
  Transmission Date: 20170830
  Serious: No
  Sender: FDA-Public Use
  Company Number: US-GLAXOSMITHKLINE-US2017057788

PATIENT
  Sex: Female

DRUGS (3)
  1. DICLOFENAC SODIUM GEL [Suspect]
     Active Substance: DICLOFENAC SODIUM
     Indication: POST-TRAUMATIC PAIN
     Dosage: UNK UNK, U
  2. VOLTAREN [Suspect]
     Active Substance: DICLOFENAC SODIUM
     Indication: POST-TRAUMATIC PAIN
     Dosage: UNK UNK, U
     Dates: end: 2012
  3. BOTOX [Suspect]
     Active Substance: ONABOTULINUMTOXINA
     Dosage: UNK UNK, U

REACTIONS (4)
  - Circumstance or information capable of leading to medication error [Unknown]
  - Product use in unapproved indication [Unknown]
  - Off label use [Unknown]
  - Drug ineffective [Unknown]
